FAERS Safety Report 5016259-6 (Version None)
Quarter: 2006Q2

REPORT INFORMATION
  Report Type: 
  Country: None (occurrence: None)
  Receive Date: 20060417
  Receipt Date: 20050408
  Transmission Date: 20061013
  Serious: Yes (Other)
  Sender: FDA-Public Use
  Company Number: 05-04-0577

PATIENT
  Age: 13 Year
  Sex: Male

DRUGS (1)
  1. FLUVOXAMINE MALEATE [Suspect]
     Indication: OBSESSIVE-COMPULSIVE DISORDER
     Dosage: 50MG QAM, ORAL
     Route: 048
     Dates: start: 20020101

REACTIONS (1)
  - DUODENAL ULCER [None]
